FAERS Safety Report 16306510 (Version 1)
Quarter: 2019Q2

REPORT INFORMATION
  Report Type: Spontaneous
  Country: NL (occurrence: NL)
  Receive Date: 20190513
  Receipt Date: 20190513
  Transmission Date: 20190711
  Serious: Yes (Life-Threatening, Hospitalization)
  Sender: FDA-Public Use
  Company Number: NL-MYLANLABS-2019M1044558

PATIENT
  Age: 78 Year
  Sex: Female
  Weight: 70 kg

DRUGS (12)
  1. CETIRIZINE [Concomitant]
     Active Substance: CETIRIZINE HYDROCHLORIDE
     Dosage: 2DD2
  2. DIGOXINE [Concomitant]
     Active Substance: DIGOXIN
     Dosage: 1DD1
  3. METOPROLOL                         /00376903/ [Concomitant]
     Active Substance: METOPROLOL SUCCINATE
     Dosage: 1DD1
  4. ACENOCOUMAROL [Concomitant]
     Active Substance: ACENOCOUMAROL
     Dosage: 1 X PER DAG VOLGENS AFSPRAAK
  5. SIMVASTATINE [Concomitant]
     Active Substance: SIMVASTATIN
     Dosage: 1DD1
  6. METFORMIN [Suspect]
     Active Substance: METFORMIN HYDROCHLORIDE
     Indication: TYPE 2 DIABETES MELLITUS
     Dosage: TWEEMAAL DAAGS 500MG
     Route: 048
     Dates: start: 20110909, end: 20171211
  7. GLIMEPIRIDE. [Concomitant]
     Active Substance: GLIMEPIRIDE
     Dosage: 1DD2MG
  8. METOPROLOL                         /00376903/ [Concomitant]
     Active Substance: METOPROLOL SUCCINATE
     Dosage: 1DD1
  9. NITROFURANTOINE [Concomitant]
     Active Substance: NITROFURANTOIN
     Dosage: 1DD1
  10. FUROSEMIDE. [Concomitant]
     Active Substance: FUROSEMIDE
     Dosage: 1DD1; ZN 1 EXTRA
  11. CARBOMER [Concomitant]
     Active Substance: CARBOMER
     Dosage: AN ZO NODIG GEBRUIKEN, ZO NODIG HERHALEN, JAARRECEPT
  12. CALCIUM CARBONATE;RISEDRONIC ACID [Concomitant]
     Dosage: VOLGENS VOORSCHRIFT

REACTIONS (1)
  - Angioedema [Recovered/Resolved]

NARRATIVE: CASE EVENT DATE: 20120201
